FAERS Safety Report 6734406-2 (Version None)
Quarter: 2010Q2

REPORT INFORMATION
  Report Type: 
  Country: None (occurrence: None)
  Receive Date: 20100520
  Receipt Date: 20100517
  Transmission Date: 20101027
  Serious: Yes (Hospitalization)
  Sender: FDA-Public Use
  Company Number: CHPA2010US08525

PATIENT
  Age: 83 Year
  Sex: Female
  Weight: 76.19 kg

DRUGS (1)
  1. BENEFIBER W/ WHEAT DEXTRIN (NCH) [Suspect]
     Indication: NUTRITIONAL SUPPORT
     Dosage: 2 TSP, ONCE/SINGLE
     Route: 048
     Dates: start: 20100502, end: 20100502

REACTIONS (2)
  - CONSTIPATION [None]
  - DIARRHOEA [None]
